FAERS Safety Report 22183624 (Version 1)
Quarter: 2023Q2

REPORT INFORMATION
  Report Type: Spontaneous
  Country: US (occurrence: US)
  Receive Date: 20230406
  Receipt Date: 20230406
  Transmission Date: 20230722
  Serious: Yes (Hospitalization, Other)
  Sender: FDA-Public Use
  Company Number: US-Genus_Lifesciences-USA-POI0580202300182

PATIENT
  Age: 66 Year
  Sex: Male

DRUGS (4)
  1. GOPRELTO [Suspect]
     Active Substance: COCAINE HYDROCHLORIDE
     Indication: Drug abuse
     Dosage: UNKNOWN
     Route: 065
  2. INFLUENZA VIRUS VACCINE [Suspect]
     Active Substance: INFLUENZA VIRUS VACCINE
     Indication: Immunisation
     Dosage: 1 DOSE, LEFT DELTOID
     Route: 030
     Dates: start: 20230109, end: 20230109
  3. ALBUTEROL [Concomitant]
     Active Substance: ALBUTEROL
     Indication: Emphysema
     Dates: start: 2018
  4. PRAZOSIN [Concomitant]
     Active Substance: PRAZOSIN
     Indication: Hypertension

REACTIONS (3)
  - Suicidal ideation [Recovered/Resolved]
  - Bipolar disorder [Recovered/Resolved]
  - Drug abuse [Recovered/Resolved]

NARRATIVE: CASE EVENT DATE: 20230216
